FAERS Safety Report 7893042-5 (Version None)
Quarter: 2011Q4

REPORT INFORMATION
  Report Type: 
  Country: None (occurrence: None)
  Receive Date: 20111104
  Receipt Date: 20110713
  Transmission Date: 20120403
  Serious: No
  Sender: FDA-Public Use
  Company Number: US-GLAXOSMITHKLINE-A0936673A

PATIENT
  Sex: Female

DRUGS (8)
  1. HORIZANT [Suspect]
     Indication: RESTLESS LEGS SYNDROME
     Dosage: 600MG PER DAY
     Route: 048
     Dates: start: 20110712
  2. VALTREX [Concomitant]
  3. FLONASE [Concomitant]
  4. VOLTAREN-XR [Concomitant]
  5. SIMVASTATIN [Concomitant]
  6. XANAX [Concomitant]
  7. REQUIP [Suspect]
     Indication: RESTLESS LEGS SYNDROME
     Dosage: 1MG PER DAY
     Route: 048
     Dates: start: 20050101, end: 20110711
  8. WELLBUTRIN SR [Concomitant]

REACTIONS (5)
  - INSOMNIA [None]
  - DRUG INEFFECTIVE [None]
  - SLUGGISHNESS [None]
  - VOMITING [None]
  - NAUSEA [None]
